FAERS Safety Report 9869344 (Version 3)
Quarter: 2014Q1

REPORT INFORMATION
  Report Type: Report from Study
  Country: US (occurrence: US)
  Receive Date: 20140205
  Receipt Date: 20140228
  Transmission Date: 20141002
  Serious: Yes (Hospitalization)
  Sender: FDA-Public Use
  Company Number: US-JNJFOC-20140117904

PATIENT
  Sex: Female
  Weight: 86.18 kg

DRUGS (5)
  1. SIMPONI [Suspect]
     Indication: PSORIATIC ARTHROPATHY
     Route: 058
     Dates: end: 201309
  2. SIMPONI [Suspect]
     Indication: PSORIATIC ARTHROPATHY
     Route: 058
     Dates: start: 201311
  3. FOLIC ACID [Concomitant]
     Route: 048
  4. METHOTREXATE [Concomitant]
     Indication: ARTHRITIS
     Route: 048
  5. MOBIC [Concomitant]
     Indication: ARTHRITIS
     Route: 048

REACTIONS (2)
  - Arthropathy [Recovered/Resolved]
  - Product label issue [Unknown]
